FAERS Safety Report 4775772-7 (Version None)
Quarter: 2005Q3

REPORT INFORMATION
  Report Type: 
  Country: None (occurrence: None)
  Receive Date: 20050920
  Receipt Date: 20050920
  Transmission Date: 20060218
  Serious: Yes (Other)
  Sender: FDA-Public Use
  Company Number: None

PATIENT
  Age: 82 Year
  Sex: Male
  Weight: 63.5036 kg

DRUGS (4)
  1. CIPROFLOXACIN [Suspect]
     Indication: URINARY TRACT INFECTION
     Dosage: TWICE A DAY ORALLY
     Route: 048
     Dates: start: 20050901, end: 20050908
  2. CIPROFLOXACIN [Suspect]
     Indication: URINE ABNORMALITY
     Dosage: TWICE A DAY ORALLY
     Route: 048
     Dates: start: 20050901, end: 20050908
  3. LISINOPRIL [Concomitant]
  4. OMEPREZOL [Concomitant]

REACTIONS (3)
  - RASH [None]
  - SCAR [None]
  - WOUND SECRETION [None]
